FAERS Safety Report 23869816 (Version 1)
Quarter: 2024Q2

REPORT INFORMATION
  Report Type: Spontaneous
  Country: TW (occurrence: TW)
  Receive Date: 20240517
  Receipt Date: 20240517
  Transmission Date: 20240716
  Serious: Yes (Death, Other)
  Sender: FDA-Public Use
  Company Number: TW-BRISTOL-MYERS SQUIBB COMPANY-2024-076557

PATIENT
  Age: 57 Year
  Sex: Male
  Weight: 50 kg

DRUGS (9)
  1. OPDIVO [Suspect]
     Active Substance: NIVOLUMAB
     Indication: Gastric cancer
     Route: 042
  2. TRISODIUM CITRATE DIHYDRATE [Concomitant]
     Active Substance: TRISODIUM CITRATE DIHYDRATE
     Indication: Metastatic gastric cancer
     Route: 042
  3. SODIUM CHLORIDE [Concomitant]
     Active Substance: SODIUM CHLORIDE
     Indication: Metastatic gastric cancer
     Route: 042
  4. MANNITOL [Concomitant]
     Active Substance: MANNITOL
     Indication: Metastatic gastric cancer
     Route: 042
  5. PENTETIC ACID [Concomitant]
     Active Substance: PENTETIC ACID
     Indication: Metastatic gastric cancer
     Route: 042
  6. HYDROCHLORIC ACID [Concomitant]
     Active Substance: HYDROCHLORIC ACID
     Indication: Metastatic gastric cancer
     Route: 042
  7. POLYSORBATE 80 [Concomitant]
     Active Substance: POLYSORBATE 80
     Indication: Metastatic gastric cancer
     Route: 042
  8. SODIUM HYDROXIDE [Concomitant]
     Active Substance: SODIUM HYDROXIDE
     Indication: Metastatic gastric cancer
     Route: 042
  9. WATER FOR INJECTION [Concomitant]
     Active Substance: WATER
     Indication: Metastatic gastric cancer
     Route: 042

REACTIONS (8)
  - Pancytopenia [Fatal]
  - Sepsis [Fatal]
  - Anaemia [Unknown]
  - Thrombocytopenia [Unknown]
  - Pneumonia [Fatal]
  - Malignant neoplasm progression [Unknown]
  - Acute kidney injury [Unknown]
  - Hyponatraemia [Unknown]

NARRATIVE: CASE EVENT DATE: 20240501
